FAERS Safety Report 24636955 (Version 4)
Quarter: 2025Q1

REPORT INFORMATION
  Report Type: Spontaneous
  Country: BR (occurrence: BR)
  Receive Date: 20241119
  Receipt Date: 20250207
  Transmission Date: 20250408
  Serious: Yes (Life-Threatening, Other)
  Sender: SANDOZ
  Company Number: BR-002147023-NVSC2024BR220734

PATIENT
  Age: 61 Year
  Sex: Female
  Weight: 56 kg

DRUGS (12)
  1. ANASTROZOLE [Suspect]
     Active Substance: ANASTROZOLE
     Indication: Hormone therapy
     Route: 048
     Dates: start: 201708, end: 202408
  2. ABEMACICLIB [Suspect]
     Active Substance: ABEMACICLIB
     Dosage: 1 DF, BID
     Route: 048
  3. ABEMACICLIB [Suspect]
     Active Substance: ABEMACICLIB
     Indication: Neoplasm malignant
     Route: 065
  4. ZOMETA [Suspect]
     Active Substance: ZOLEDRONIC ACID
     Indication: Breast cancer
     Route: 065
     Dates: start: 20241122
  5. CHOLECALCIFEROL [Concomitant]
     Active Substance: CHOLECALCIFEROL
     Indication: Vitamin supplementation
     Dosage: 1 DOSAGE FORM (TABLET), QW (7000 UI)
     Route: 065
     Dates: start: 201708
  6. LOSARTAN POTASSIUM [Concomitant]
     Active Substance: LOSARTAN POTASSIUM
     Indication: Hypertension
     Dosage: 1 DOSAGE FORM, QD (H - L 5G) (10 YEARS AGO)
     Route: 065
  7. BUPROPION HYDROCHLORIDE [Concomitant]
     Active Substance: BUPROPION HYDROCHLORIDE
     Indication: Depression
     Dosage: 1 DOSAGE FORM (TABLET), BID (300 MG) (10 YEARS AGO)
     Route: 048
  8. CALDE KM [Concomitant]
     Indication: Mineral supplementation
     Dosage: 1 DOSAGE FORM, QD (TABLET)
     Route: 048
     Dates: start: 201708
  9. FULVESTRANT [Concomitant]
     Active Substance: FULVESTRANT
     Indication: Neoplasm malignant
     Route: 042
  10. MESALAMINE [Concomitant]
     Active Substance: MESALAMINE
     Indication: Colitis ulcerative
     Dosage: 1 DOSAGE FORM (TABLET), QD, 800 MG (10 YEARS AGO)
     Route: 048
  11. PREGABALIN [Concomitant]
     Active Substance: PREGABALIN
     Indication: Pain
     Dosage: 1 DOSAGE FORM, QD (TABLET)
     Route: 048
  12. RIVOTRIL [Concomitant]
     Active Substance: CLONAZEPAM
     Indication: Prophylaxis
     Dosage: 2.5 MG/ML (10 DRP, QD) (10 YEARS AGO) (SOLUTION)
     Route: 048

REACTIONS (6)
  - Illness [Not Recovered/Not Resolved]
  - Metastases to spine [Not Recovered/Not Resolved]
  - Bone cancer [Unknown]
  - Spinal pain [Unknown]
  - Neoplasm [Unknown]
  - Endometriosis [Unknown]

NARRATIVE: CASE EVENT DATE: 20241101
